FAERS Safety Report 5670198-6 (Version None)
Quarter: 2008Q1

REPORT INFORMATION
  Report Type: 
  Country: None (occurrence: None)
  Receive Date: 20080312
  Receipt Date: 20080226
  Transmission Date: 20080703
  Serious: Yes (Other)
  Sender: FDA-Public Use
  Company Number: S08-FRA-00859-01

PATIENT
  Age: 85 Year
  Sex: Male

DRUGS (5)
  1. MEMANTINE HCL [Suspect]
     Indication: DEMENTIA ALZHEIMER'S TYPE
     Dosage: 5 MG BID PO
     Route: 048
     Dates: start: 20071001, end: 20080101
  2. ATORVASTATIN CALCIUM [Concomitant]
  3. KARDEGIC (ACETYLSALICYLATE LYSINE) [Concomitant]
  4. IRBESARTAN [Concomitant]
  5. BEROCCA (VITAMIN B-COMPLEX) [Concomitant]

REACTIONS (3)
  - ECZEMA [None]
  - NO THERAPEUTIC RESPONSE [None]
  - TOXIC SKIN ERUPTION [None]
